FAERS Safety Report 4733280-3 (Version None)
Quarter: 2005Q3

REPORT INFORMATION
  Report Type: 
  Country: None (occurrence: None)
  Receive Date: 20050803
  Receipt Date: 20050722
  Transmission Date: 20060218
  Serious: Yes (Hospitalization)
  Sender: FDA-Public Use
  Company Number: JP-BRISTOL-MYERS SQUIBB COMPANY-13057484

PATIENT
  Age: 21 Year
  Sex: Male

DRUGS (4)
  1. GATIFLO TABS [Suspect]
     Indication: BRONCHITIS ACUTE
     Route: 048
     Dates: start: 20050722, end: 20050722
  2. TIENAM [Concomitant]
     Route: 042
     Dates: start: 20050722, end: 20050722
  3. POLARAMINE [Concomitant]
     Route: 048
     Dates: start: 20050722, end: 20050722
  4. LOXOMARIN [Concomitant]
     Route: 048
     Dates: start: 20050722, end: 20050722

REACTIONS (2)
  - ANAPHYLACTIC SHOCK [None]
  - DRUG ERUPTION [None]
